FAERS Safety Report 4390611-4 (Version None)
Quarter: 2004Q2

REPORT INFORMATION
  Report Type: 
  Country: None (occurrence: None)
  Receive Date: 20040630
  Receipt Date: 20040614
  Transmission Date: 20050107
  Serious: Yes (Hospitalization)
  Sender: FDA-Public Use
  Company Number: 2004AC00147

PATIENT
  Age: 45 Year
  Sex: Female

DRUGS (5)
  1. QUETIAPINE [Suspect]
     Indication: BORDERLINE PERSONALITY DISORDER
  2. MIRTAZAPINE [Concomitant]
  3. TEMAZEPAM [Concomitant]
  4. LANSOPRAZOLE [Concomitant]
  5. PROMETHAZINE [Concomitant]

REACTIONS (6)
  - ABDOMINAL PAIN LOWER [None]
  - DECREASED APPETITE [None]
  - DIVERTICULUM INTESTINAL [None]
  - PANCREATITIS ACUTE [None]
  - PANCREATITIS CHRONIC [None]
  - PSEUDOCYST [None]
